FAERS Safety Report 26051161 (Version 1)
Quarter: 2025Q4

REPORT INFORMATION
  Report Type: Spontaneous
  Country: US (occurrence: US)
  Receive Date: 20251117
  Receipt Date: 20251117
  Transmission Date: 20260118
  Serious: No
  Sender: RECKITT BENCKISER
  Company Number: US-PROD-AS2-212756134-20-24-USA-RB-0016049

PATIENT
  Age: 2 Year
  Sex: Female
  Weight: 11.793 kg

DRUGS (1)
  1. DELSYM [Suspect]
     Active Substance: DEXTROMETHORPHAN
     Indication: Cough
     Dosage: 6 ML QD
     Route: 048
     Dates: start: 20241220

REACTIONS (1)
  - Product use issue [Unknown]
